FAERS Safety Report 25914530 (Version 1)
Quarter: 2025Q4

REPORT INFORMATION
  Report Type: Spontaneous
  Country: BA (occurrence: BA)
  Receive Date: 20251013
  Receipt Date: 20251013
  Transmission Date: 20260117
  Serious: Yes (Other)
  Sender: ABBVIE
  Company Number: BA-ABBVIE-6497952

PATIENT
  Age: 64 Year
  Sex: Female

DRUGS (1)
  1. VISTABEL [Suspect]
     Active Substance: BOTULINUM TOXIN TYPE A
     Indication: Product used for unknown indication
     Dosage: TIME INTERVAL: AS NECESSARY
     Route: 065
     Dates: start: 20250120, end: 20250120

REACTIONS (8)
  - Botulism [Recovered/Resolved]
  - Periorbital oedema [Not Recovered/Not Resolved]
  - Nodule [Not Recovered/Not Resolved]
  - Arrhythmia [Recovered/Resolved]
  - Muscle twitching [Unknown]
  - Dyspnoea [Recovered/Resolved]
  - Mass [Unknown]
  - Granuloma [Unknown]

NARRATIVE: CASE EVENT DATE: 20250101
